FAERS Safety Report 16242628 (Version 1)
Quarter: 2019Q2

REPORT INFORMATION
  Report Type: Spontaneous
  Country: US (occurrence: US)
  Receive Date: 20190426
  Receipt Date: 20190426
  Transmission Date: 20190711
  Serious: No
  Sender: FDA-Public Use
  Company Number: US-IPSEN BIOPHARMACEUTICALS, INC.-2019-06577

PATIENT
  Age: 59 Year
  Sex: Female

DRUGS (3)
  1. DYSPORT [Suspect]
     Active Substance: ABOBOTULINUMTOXINA
     Indication: SKIN WRINKLING
  2. DYSPORT [Suspect]
     Active Substance: ABOBOTULINUMTOXINA
     Indication: OFF LABEL USE
  3. DYSPORT [Suspect]
     Active Substance: ABOBOTULINUMTOXINA
     Indication: MIGRAINE
     Dosage: 20 UNITS
     Route: 065
     Dates: start: 20190305, end: 20190305

REACTIONS (10)
  - Dyspnoea [Unknown]
  - Hypoaesthesia [Unknown]
  - Asthenopia [Unknown]
  - Feeling abnormal [Unknown]
  - Anxiety [Unknown]
  - Tongue discomfort [Unknown]
  - Dysphagia [Unknown]
  - Hypersensitivity [Unknown]
  - Off label use [Unknown]
  - Off label use [Unknown]

NARRATIVE: CASE EVENT DATE: 20190408
